FAERS Safety Report 17989141 (Version 1)
Quarter: 2020Q3

REPORT INFORMATION
  Report Type: Spontaneous
  Country: DE (occurrence: DE)
  Receive Date: 20200707
  Receipt Date: 20200707
  Transmission Date: 20201103
  Serious: Yes (Life-Threatening)
  Sender: FDA-Public Use
  Company Number: DE-PFIZER INC-2020140790

PATIENT
  Age: 33 Year
  Sex: Female
  Weight: 63 kg

DRUGS (1)
  1. CYTOTEC [Suspect]
     Active Substance: MISOPROSTOL
     Indication: LABOUR INDUCTION
     Dosage: 0.75 DF, 2X/DAY (1/4 AT 11:30 AM AND 1/2 TABLET AT 3:30 PM)
     Route: 048

REACTIONS (9)
  - Uterine tachysystole [Recovered/Resolved]
  - Somnolence [Recovering/Resolving]
  - Product use in unapproved indication [Unknown]
  - Pyrexia [Unknown]
  - Tremor [Recovering/Resolving]
  - Chills [Unknown]
  - Vomiting [Recovering/Resolving]
  - Altered state of consciousness [Unknown]
  - Off label use [Unknown]

NARRATIVE: CASE EVENT DATE: 20181212
